FAERS Safety Report 18132428 (Version 2)
Quarter: 2020Q3

REPORT INFORMATION
  Report Type: Spontaneous
  Country: US (occurrence: US)
  Receive Date: 20200811
  Receipt Date: 20200901
  Transmission Date: 20201103
  Serious: Yes (Other)
  Sender: FDA-Public Use
  Company Number: US-ALKEM LABORATORIES LIMITED-US-ALKEM-2020-04453

PATIENT
  Age: 4 Day
  Sex: Male

DRUGS (2)
  1. OXYCODONE HYDROCHLORIDE. [Suspect]
     Active Substance: OXYCODONE HYDROCHLORIDE
     Indication: PRODUCT USED FOR UNKNOWN INDICATION
     Dosage: UNK
     Route: 063
  2. PERCOCET [Suspect]
     Active Substance: ACETAMINOPHEN\OXYCODONE HYDROCHLORIDE
     Indication: PRODUCT USED FOR UNKNOWN INDICATION
     Dosage: UNK
     Route: 063

REACTIONS (9)
  - Lethargy [Recovered/Resolved]
  - Poor feeding infant [Recovered/Resolved]
  - Toxicity to various agents [Unknown]
  - Hypothermia [Recovered/Resolved]
  - Infant sedation [Recovered/Resolved]
  - Exposure via breast milk [Unknown]
  - Miosis [Recovered/Resolved]
  - Poor sucking reflex [Recovered/Resolved]
  - Weight decrease neonatal [Unknown]
